FAERS Safety Report 11417656 (Version 1)
Quarter: 2015Q3

REPORT INFORMATION
  Report Type: Spontaneous
  Country: US (occurrence: US)
  Receive Date: 20150825
  Receipt Date: 20150825
  Transmission Date: 20151125
  Serious: Yes (Other)
  Sender: FDA-Public Use
  Company Number: US-BAXTER-2015BAX045384

PATIENT
  Age: 53 Year
  Sex: Male

DRUGS (1)
  1. TISSEEL KIT [Suspect]
     Active Substance: FIBRINOGEN HUMAN\THROMBIN HUMAN
     Indication: TISSUE SEALING
     Dosage: OVER SEVEN SESSIONS WITHIN THE FIRST 2.5 MONTHS WITH A TOTAL OF 82 CC
     Route: 061

REACTIONS (2)
  - Fistula of small intestine [Recovered/Resolved]
  - Post procedural complication [Recovered/Resolved]
